FAERS Safety Report 5513905-5 (Version None)
Quarter: 2007Q4

REPORT INFORMATION
  Report Type: 
  Country: None (occurrence: None)
  Receive Date: 20071106
  Receipt Date: 20061026
  Transmission Date: 20080405
  Serious: Yes (Hospitalization, Other)
  Sender: FDA-Public Use
  Company Number: US200610005055

PATIENT
  Age: 71 Year
  Sex: Female

DRUGS (2)
  1. PROZAC WEEKLY [Suspect]
     Indication: POST-TRAUMATIC STRESS DISORDER
     Dosage: 90 MG, 2/W, ORAL
     Route: 048
  2. TRAZODONE HCL [Concomitant]

REACTIONS (1)
  - SYNCOPE [None]
